FAERS Safety Report 20953183 (Version 1)
Quarter: 2022Q2

REPORT INFORMATION
  Report Type: Spontaneous
  Country: BR (occurrence: BR)
  Receive Date: 20220613
  Receipt Date: 20220613
  Transmission Date: 20220721
  Serious: Yes (Other)
  Sender: FDA-Public Use
  Company Number: BR-NOVARTISPH-NVSC2022BR134597

PATIENT
  Sex: Female

DRUGS (1)
  1. TEGRETOL XR [Suspect]
     Active Substance: CARBAMAZEPINE
     Indication: Bipolar disorder
     Dosage: 400 MG, STARTED APPROXIMATELY 4 YEARS AGO
     Route: 065

REACTIONS (3)
  - Suicide attempt [Unknown]
  - Euphoric mood [Not Recovered/Not Resolved]
  - Product availability issue [Unknown]
